FAERS Safety Report 7512752-2 (Version None)
Quarter: 2011Q2

REPORT INFORMATION
  Report Type: 
  Country: None (occurrence: None)
  Receive Date: 20110531
  Receipt Date: 20110513
  Transmission Date: 20111010
  Serious: Yes (Death, Hospitalization)
  Sender: FDA-Public Use
  Company Number: A0849750A

PATIENT
  Age: 66 Year
  Sex: Male
  Weight: 101.8 kg

DRUGS (7)
  1. HYDROCODONE BITARTRATE [Concomitant]
  2. NEXIUM [Concomitant]
  3. LOTENSIN [Concomitant]
  4. AVANDIA [Suspect]
     Dosage: 8MG PER DAY
     Route: 048
     Dates: start: 20020101, end: 20070709
  5. ALBUTEROL SULFATE AUTOHALER [Concomitant]
  6. INSULIN [Concomitant]
  7. HUMULIN R [Concomitant]

REACTIONS (9)
  - MYOCARDIAL INFARCTION [None]
  - VENTRICULAR TACHYCARDIA [None]
  - PERICARDIAL EFFUSION [None]
  - CARDIAC FAILURE CONGESTIVE [None]
  - CARDIAC TAMPONADE [None]
  - HAEMOPTYSIS [None]
  - BACTERIAL SEPSIS [None]
  - DISEASE PROGRESSION [None]
  - CARDIAC DISORDER [None]
